FAERS Safety Report 10185344 (Version 1)
Quarter: 2014Q2

REPORT INFORMATION
  Report Type: Spontaneous
  Country: US (occurrence: None)
  Receive Date: 20140520
  Receipt Date: 20140520
  Transmission Date: 20141212
  Serious: Yes (Hospitalization)
  Sender: FDA-Public Use
  Company Number: None

PATIENT
  Age: 51 Year
  Sex: Male

DRUGS (15)
  1. RIFABUTIN [Suspect]
     Indication: TUBERCULOSIS
     Route: 048
     Dates: start: 20121102, end: 20121115
  2. ABACAVIR [Concomitant]
  3. LAMIVUDINE [Concomitant]
  4. ISONIAZID [Concomitant]
  5. ETHAMBUTOL [Concomitant]
  6. LEVOFLOXACIN [Concomitant]
  7. CITALOPRAM [Concomitant]
  8. METHYLPHENIDATE [Concomitant]
  9. DARUNAVIR [Concomitant]
  10. RITONAVIR [Concomitant]
  11. FOLIC ACID [Concomitant]
  12. THIAMINE [Concomitant]
  13. LEVETIRACETAM [Concomitant]
  14. MULTIVITAMIN [Concomitant]
  15. PYRIDOXINE [Concomitant]

REACTIONS (2)
  - Tubulointerstitial nephritis [None]
  - Liver function test abnormal [None]
